FAERS Safety Report 16795353 (Version 1)
Quarter: 2019Q3

REPORT INFORMATION
  Report Type: Spontaneous
  Country: JP (occurrence: JP)
  Receive Date: 20190911
  Receipt Date: 20190911
  Transmission Date: 20191005
  Serious: Yes (Other)
  Sender: FDA-Public Use
  Company Number: JP-PFIZER INC-2019384952

PATIENT

DRUGS (4)
  1. ESCITALOPRAM [Suspect]
     Active Substance: ESCITALOPRAM OXALATE
     Dosage: 20 MG, DAILY
  2. TRIAZOLAM. [Suspect]
     Active Substance: TRIAZOLAM
     Dosage: 0.5MG, DAILY
  3. MIRTAZAPINE. [Suspect]
     Active Substance: MIRTAZAPINE
     Dosage: 45 MG, DAILY
  4. BROTIZOLAM [Suspect]
     Active Substance: BROTIZOLAM
     Dosage: 0.25 MG, DAILY

REACTIONS (11)
  - Hyperventilation [Unknown]
  - Pallor [Unknown]
  - Depressed mood [Unknown]
  - Feeling guilty [Unknown]
  - Decreased interest [Unknown]
  - Anxiety [Unknown]
  - Headache [Unknown]
  - Initial insomnia [Unknown]
  - Mental impairment [Unknown]
  - Palpitations [Unknown]
  - Abulia [Unknown]
